FAERS Safety Report 24877154 (Version 1)
Quarter: 2025Q1

REPORT INFORMATION
  Report Type: Spontaneous
  Country: CN (occurrence: CN)
  Receive Date: 20250123
  Receipt Date: 20250123
  Transmission Date: 20250409
  Serious: Yes (Hospitalization)
  Sender: TAKEDA
  Company Number: CN-TAKEDA-2025TUS005726

PATIENT
  Age: 61 Year
  Sex: Male

DRUGS (2)
  1. NINLARO [Suspect]
     Active Substance: IXAZOMIB CITRATE
     Indication: Plasma cell myeloma
     Dosage: 60 MILLIGRAM, QD
     Dates: start: 20241016, end: 20241016
  2. PYROTINIB [Suspect]
     Active Substance: PYROTINIB
     Indication: Plasma cell myeloma
     Dosage: 400 MILLIGRAM, QD
     Dates: start: 20241016

REACTIONS (1)
  - Myelosuppression [Recovering/Resolving]

NARRATIVE: CASE EVENT DATE: 20241101
